FAERS Safety Report 5711057-X (Version None)
Quarter: 2008Q2

REPORT INFORMATION
  Report Type: 
  Country: None (occurrence: None)
  Receive Date: 20080421
  Receipt Date: 20080417
  Transmission Date: 20081010
  Serious: Yes (Death, Hospitalization, Other)
  Sender: FDA-Public Use
  Company Number: US-BAYER-200713407BWH

PATIENT
  Age: 77 Year
  Sex: Male
  Weight: 103 kg

DRUGS (1)
  1. NEXAVAR [Suspect]
     Indication: HEPATIC CANCER METASTATIC
     Dosage: TOTAL DAILY DOSE: 800 MG  UNIT DOSE: 200 MG
     Route: 048

REACTIONS (5)
  - DEATH [None]
  - DIARRHOEA [None]
  - FATIGUE [None]
  - STAPHYLOCOCCAL INFECTION [None]
  - STREPTOCOCCAL IDENTIFICATION TEST POSITIVE [None]
